FAERS Safety Report 4874185-7 (Version None)
Quarter: 2005Q4

REPORT INFORMATION
  Report Type: 
  Country: None (occurrence: None)
  Receive Date: 20051201
  Receipt Date: 20050805
  Transmission Date: 20060501
  Serious: No
  Sender: FDA-Public Use
  Company Number: 2005PV000989

PATIENT
  Age: 77 Year
  Sex: Female
  Weight: 78.0187 kg

DRUGS (10)
  1. BYETTA [Suspect]
     Indication: DIABETES MELLITUS NON-INSULIN-DEPENDENT
     Dosage: 5  MCG; BID; SC
     Route: 058
     Dates: start: 20050726
  2. METFORMIN HYDROCHLORIDE [Concomitant]
  3. AVANDIA [Concomitant]
  4. GLYSET [Concomitant]
  5. GLUCOTROL XL [Concomitant]
  6. TAMOXIFEN CITRATE [Concomitant]
  7. TOPROL-XL [Concomitant]
  8. LIPITOR [Concomitant]
  9. LANTUS [Concomitant]
  10. ASPIRIN [Concomitant]

REACTIONS (2)
  - BLOOD GLUCOSE INCREASED [None]
  - CHEST PAIN [None]
